FAERS Safety Report 5854014-5 (Version None)
Quarter: 2008Q3

REPORT INFORMATION
  Report Type: 
  Country: None (occurrence: None)
  Receive Date: 20080821
  Receipt Date: 20080814
  Transmission Date: 20090109
  Serious: Yes (Death, Hospitalization)
  Sender: FDA-Public Use
  Company Number: APP200800747

PATIENT
  Age: 74 Year
  Sex: Female

DRUGS (3)
  1. HEPARIN SODIUM INJECTION [Suspect]
     Indication: CORONARY ARTERY BYPASS
     Dosage: VARYING DOSES IN OR, INTRAVENOUS BOLUS
     Route: 040
     Dates: start: 20080707
  2. HEPARIN SODIUM INJECTION [Suspect]
     Indication: CORONARY ARTERY BYPASS
     Dosage: VARYING DOSES IN OR, INTRAVENOUS BOLUS
     Route: 040
     Dates: start: 20080707
  3. HEPARIN SODIUM INJECTION [Suspect]

REACTIONS (2)
  - DEEP VEIN THROMBOSIS [None]
  - HEPARIN-INDUCED THROMBOCYTOPENIA [None]
